FAERS Safety Report 13142114 (Version 1)
Quarter: 2017Q1

REPORT INFORMATION
  Report Type: Spontaneous
  Country: US (occurrence: US)
  Receive Date: 20170123
  Receipt Date: 20170123
  Transmission Date: 20170428
  Serious: Yes (Other)
  Sender: FDA-Public Use
  Company Number: US-BEH-2017077417

PATIENT
  Age: 52 Year
  Sex: Male

DRUGS (1)
  1. BERINERT [Suspect]
     Active Substance: HUMAN C1-ESTERASE INHIBITOR
     Indication: HEREDITARY ANGIOEDEMA
     Dosage: 1000 IU, PRN
     Route: 042
     Dates: start: 201610

REACTIONS (11)
  - Testicular swelling [Unknown]
  - Peripheral swelling [Unknown]
  - Scrotal swelling [Unknown]
  - Testicular swelling [Unknown]
  - Testicular swelling [Unknown]
  - Scrotal swelling [Unknown]
  - Scrotal swelling [Unknown]
  - Scrotal swelling [Unknown]
  - Testicular swelling [Unknown]
  - Peripheral swelling [Unknown]
  - Peripheral swelling [Unknown]

NARRATIVE: CASE EVENT DATE: 20170115
